FAERS Safety Report 25184376 (Version 1)
Quarter: 2025Q2

REPORT INFORMATION
  Report Type: Spontaneous
  Country: IN (occurrence: IN)
  Receive Date: 20250410
  Receipt Date: 20250410
  Transmission Date: 20250717
  Serious: Yes (Other)
  Sender: MYLAN
  Company Number: IN-MYLANLABS-2024M1088674

PATIENT
  Age: 47 Year
  Sex: Female

DRUGS (1)
  1. DOCETAXEL [Suspect]
     Active Substance: DOCETAXEL
     Indication: Breast cancer

REACTIONS (4)
  - Infusion site vesicles [Recovered/Resolved]
  - Blister [Recovered/Resolved]
  - Infusion site reaction [Recovered/Resolved]
  - Infusion site extravasation [Recovered/Resolved]
